FAERS Safety Report 9862753 (Version 5)
Quarter: 2014Q3

REPORT INFORMATION
  Report Type: Spontaneous
  Country: CA (occurrence: None)
  Receive Date: 20140130
  Receipt Date: 20140905
  Transmission Date: 20150326
  Serious: Yes (Death, Hospitalization, Other)
  Sender: FDA-Public Use
  Company Number: CA-013422

PATIENT
  Age: 64 Year
  Sex: Male

DRUGS (12)
  1. DEXILANT [Concomitant]
     Active Substance: DEXLANSOPRAZOLE
  2. DOCUSATE SODIUM. [Concomitant]
     Active Substance: DOCUSATE SODIUM
  3. RATIO-FENTANYL [Concomitant]
     Active Substance: FENTANYL
  4. BAYER CITRACAL VITAMIN D [Concomitant]
  5. ACETAMINOPHEN. [Concomitant]
     Active Substance: ACETAMINOPHEN
  6. FIRMAGON [Suspect]
     Active Substance: DEGARELIX ACETATE
     Indication: PROSTATE CANCER
     Route: 058
     Dates: start: 20130218, end: 20130218
  7. PREDNISONE. [Concomitant]
     Active Substance: PREDNISONE
  8. PMS-LACTULOSE [Concomitant]
  9. JAMP CALCIUM [Concomitant]
  10. STATEX [Concomitant]
     Active Substance: MORPHINE SULFATE
  11. LAX-A-DAY [Concomitant]
  12. ZYTIGA [Concomitant]
     Active Substance: ABIRATERONE ACETATE

REACTIONS (7)
  - Activities of daily living impaired [None]
  - Femur fracture [None]
  - Red blood cell count decreased [None]
  - Metastases to bone [None]
  - Fatigue [None]
  - Anaemia [None]
  - Fall [None]

NARRATIVE: CASE EVENT DATE: 201307
